FAERS Safety Report 7085346-3 (Version None)
Quarter: 2010Q4

REPORT INFORMATION
  Report Type: 
  Country: None (occurrence: None)
  Receive Date: 20101105
  Receipt Date: 20101028
  Transmission Date: 20110411
  Serious: Yes (Other)
  Sender: FDA-Public Use
  Company Number: JP-PFIZER INC-2010108607

PATIENT
  Age: 71 Year
  Weight: 68 kg

DRUGS (10)
  1. LYRICA [Suspect]
     Dosage: 75 MG, DAILY
     Route: 048
  2. ZANTAC [Concomitant]
  3. TAVEGYL [Concomitant]
  4. PURSENNID [Concomitant]
  5. ZADITEN [Concomitant]
  6. LASIX [Concomitant]
  7. SPIRONOLACTONE [Concomitant]
  8. ASTOMIN [Concomitant]
  9. SAWATENE [Concomitant]
  10. URSO 250 [Concomitant]

REACTIONS (3)
  - DIZZINESS [None]
  - FALL [None]
  - FRACTURE [None]
